FAERS Safety Report 21837959 (Version 1)
Quarter: 2023Q1

REPORT INFORMATION
  Report Type: Report from Study
  Country: US (occurrence: US)
  Receive Date: 20230109
  Receipt Date: 20230109
  Transmission Date: 20230418
  Serious: No
  Sender: FDA-Public Use
  Company Number: US-ABBVIE-4228109

PATIENT
  Sex: Female

DRUGS (1)
  1. HUMIRA [Suspect]
     Active Substance: ADALIMUMAB
     Indication: Rheumatoid arthritis
     Route: 058

REACTIONS (8)
  - Fatigue [Unknown]
  - Malaise [Unknown]
  - Ear discomfort [Unknown]
  - Pyrexia [Unknown]
  - Swelling face [Unknown]
  - Joint swelling [Unknown]
  - Pruritus [Unknown]
  - Cough [Unknown]
